FAERS Safety Report 11487955 (Version 1)
Quarter: 2015Q3

REPORT INFORMATION
  Report Type: Spontaneous
  Country: US (occurrence: US)
  Receive Date: 20150909
  Receipt Date: 20150909
  Transmission Date: 20151125
  Serious: No
  Sender: FDA-Public Use
  Company Number: US-JAZZ-JPI-P-018431

PATIENT
  Age: 56 Year
  Sex: Male
  Weight: 78.18 kg

DRUGS (6)
  1. XYREM [Suspect]
     Active Substance: SODIUM OXYBATE
     Indication: NARCOLEPSY
     Dosage: 2.25 G, BID
     Route: 048
     Dates: start: 200901, end: 200903
  2. XYREM [Suspect]
     Active Substance: SODIUM OXYBATE
     Dosage: 5.25 G, BID
     Route: 048
     Dates: start: 201203
  3. XYREM [Suspect]
     Active Substance: SODIUM OXYBATE
     Dosage: 4.5 G, BID
     Route: 048
     Dates: start: 20110912, end: 201203
  4. PROZAC [Suspect]
     Active Substance: FLUOXETINE HYDROCHLORIDE
     Indication: OBSESSIVE-COMPULSIVE DISORDER
  5. XYREM [Suspect]
     Active Substance: SODIUM OXYBATE
     Indication: SOMNOLENCE
     Dosage: UNK UNKNOWN, SINGLE
     Route: 048
     Dates: end: 20110911
  6. PROZAC [Suspect]
     Active Substance: FLUOXETINE HYDROCHLORIDE
     Indication: DEPRESSION

REACTIONS (3)
  - Obsessive-compulsive disorder [Not Recovered/Not Resolved]
  - Prescribed overdose [Unknown]
  - Loss of libido [Not Recovered/Not Resolved]

NARRATIVE: CASE EVENT DATE: 20111117
